FAERS Safety Report 20108481 (Version 1)
Quarter: 2021Q4

REPORT INFORMATION
  Report Type: Spontaneous
  Country: US (occurrence: US)
  Receive Date: 20211124
  Receipt Date: 20211124
  Transmission Date: 20220303
  Serious: No
  Sender: FDA-Public Use
  Company Number: US-PERRIGO-21US010417

PATIENT
  Age: 74 Year
  Sex: Female
  Weight: 61.224 kg

DRUGS (4)
  1. POLYETHYLENE GLYCOL 3350 [Suspect]
     Active Substance: POLYETHYLENE GLYCOL 3350
     Indication: Constipation
     Dosage: 17 G, QD
     Route: 048
     Dates: start: 20091006
  2. LEVOTHYROXINE [Concomitant]
     Active Substance: LEVOTHYROXINE
     Indication: Thyroid disorder
     Dosage: UNKNOWN, UNKNOWN
     Route: 065
  3. POTASSIUM [Concomitant]
     Active Substance: POTASSIUM
     Indication: Supplementation therapy
     Dosage: 200 MG, UNKNOWN
     Route: 065
  4. PAXIL                              /00500401/ [Concomitant]
     Indication: Anxiety
     Dosage: 30 MG, UNKNOWN
     Route: 065

REACTIONS (2)
  - Diarrhoea [Not Recovered/Not Resolved]
  - Incorrect product administration duration [Not Recovered/Not Resolved]

NARRATIVE: CASE EVENT DATE: 20091006
